FAERS Safety Report 16133568 (Version 1)
Quarter: 2019Q1

REPORT INFORMATION
  Report Type: Spontaneous
  Country: GB (occurrence: GB)
  Receive Date: 20190329
  Receipt Date: 20190329
  Transmission Date: 20190418
  Serious: Yes (Other)
  Sender: FDA-Public Use
  Company Number: GB-ACCORD-116533

PATIENT
  Age: 81 Year
  Sex: Male
  Weight: 75 kg

DRUGS (8)
  1. DIPROBASE [Concomitant]
     Active Substance: CHLOROCRESOL
     Dosage: APPLY.
     Dates: start: 20181205, end: 20181206
  2. TAMSULOSIN [Concomitant]
     Active Substance: TAMSULOSIN
     Dosage: EACH MORNING.
     Dates: start: 20180914
  3. HYDROCORTISONE. [Concomitant]
     Active Substance: HYDROCORTISONE
     Dates: start: 20181205, end: 20181206
  4. LOSARTAN. [Concomitant]
     Active Substance: LOSARTAN
     Dates: start: 20180914
  5. ASPIRIN. [Concomitant]
     Active Substance: ASPIRIN
     Dates: start: 20180914
  6. ATORVASTATIN/ATORVASTATIN CALCIUM [Suspect]
     Active Substance: ATORVASTATIN CALCIUM
     Indication: PRODUCT USED FOR UNKNOWN INDICATION
     Dates: start: 20180914
  7. PRAVASTATIN. [Concomitant]
     Active Substance: PRAVASTATIN
     Dosage: AT NIGHT.
     Dates: start: 20181205
  8. SOLIFENACIN/SOLIFENACIN SUCCINATE [Concomitant]
     Dosage: EACH NIGHT.
     Dates: start: 20180914

REACTIONS (1)
  - Eczema [Recovered/Resolved]
